FAERS Safety Report 7418766-5 (Version None)
Quarter: 2011Q2

REPORT INFORMATION
  Report Type: 
  Country: None (occurrence: None)
  Receive Date: 20110407
  Receipt Date: 20110331
  Transmission Date: 20111010
  Serious: Yes (Hospitalization, Other)
  Sender: FDA-Public Use
  Company Number: 2009SP017154

PATIENT
  Age: 23 Year
  Sex: Female
  Weight: 47.6277 kg

DRUGS (1)
  1. NUVARING [Suspect]
     Indication: CONTRACEPTION
     Dosage: 1 DF; QM; VAG
     Route: 067
     Dates: start: 20051111, end: 20070301

REACTIONS (13)
  - URINARY TRACT INFECTION [None]
  - BRAIN OEDEMA [None]
  - CEREBROVASCULAR ACCIDENT [None]
  - DEPRESSION [None]
  - SUPERIOR SAGITTAL SINUS THROMBOSIS [None]
  - ACTIVITIES OF DAILY LIVING IMPAIRED [None]
  - PAIN [None]
  - VAGINITIS BACTERIAL [None]
  - TRANSVERSE SINUS THROMBOSIS [None]
  - DERMATITIS [None]
  - SUBARACHNOID HAEMORRHAGE [None]
  - CERVICAL DYSPLASIA [None]
  - INSOMNIA [None]
